FAERS Safety Report 5531237-6 (Version None)
Quarter: 2007Q4

REPORT INFORMATION
  Report Type: 
  Country: None (occurrence: None)
  Receive Date: 20071130
  Receipt Date: 20071119
  Transmission Date: 20080405
  Serious: Yes (Hospitalization)
  Sender: FDA-Public Use
  Company Number: IR-JNJFOC-20071108013

PATIENT
  Age: 12 Year
  Sex: Male
  Weight: 23 kg

DRUGS (2)
  1. REMICADE [Suspect]
     Indication: CROHN'S DISEASE
     Route: 042
  2. PREDNISON [Concomitant]
     Indication: CROHN'S DISEASE

REACTIONS (1)
  - DRUG INEFFECTIVE [None]
